FAERS Safety Report 5582082-7 (Version None)
Quarter: 2008Q1

REPORT INFORMATION
  Report Type: 
  Country: None (occurrence: None)
  Receive Date: 20080104
  Receipt Date: 20071227
  Transmission Date: 20080703
  Serious: Yes (Other)
  Sender: FDA-Public Use
  Company Number: RU-ABBOTT-07P-251-0431550-00

PATIENT
  Sex: Female

DRUGS (1)
  1. DEPAKENE [Suspect]
     Indication: DRUG USE FOR UNKNOWN INDICATION
     Route: 065

REACTIONS (5)
  - ARTHRALGIA [None]
  - COAGULOPATHY [None]
  - ERYTHEMA INDURATUM [None]
  - PAIN OF SKIN [None]
  - PHLEBITIS [None]
